FAERS Safety Report 5304216-1 (Version None)
Quarter: 2007Q2

REPORT INFORMATION
  Report Type: 
  Country: None (occurrence: None)
  Receive Date: 20070423
  Receipt Date: 20070411
  Transmission Date: 20071010
  Serious: Yes (Hospitalization)
  Sender: FDA-Public Use
  Company Number: US-JNJFOC-20070402667

PATIENT
  Age: 29 Year
  Sex: Male

DRUGS (13)
  1. TRAMADOL HCL [Suspect]
     Indication: ABDOMINAL PAIN UPPER
     Route: 030
  2. MOTILIUM [Suspect]
     Indication: ABDOMINAL PAIN
     Route: 065
  3. PARACETAMOL [Suspect]
     Indication: ABDOMINAL PAIN UPPER
     Route: 065
  4. HYOSCINE HBR HYT [Suspect]
     Indication: ABDOMINAL PAIN UPPER
     Route: 030
  5. MYLANTA [Suspect]
     Indication: ABDOMINAL PAIN UPPER
     Route: 048
  6. DEXTROMETHORPHAN [Suspect]
     Indication: INFLUENZA LIKE ILLNESS
     Route: 065
  7. MORPHINE [Suspect]
     Indication: ABDOMINAL PAIN UPPER
     Route: 042
  8. SODIUM CHLORIDE [Suspect]
     Indication: FLUID REPLACEMENT
     Dosage: 80 ML PER HOUR
  9. METOCLOPRAMIDE [Suspect]
     Indication: DRUG USE FOR UNKNOWN INDICATION
  10. SLO-BID [Suspect]
     Indication: INFLUENZA LIKE ILLNESS
     Route: 065
  11. PHENERGAN HCL [Suspect]
     Indication: INFLUENZA LIKE ILLNESS
     Route: 065
  12. BUSCOPAN [Suspect]
     Indication: ABDOMINAL PAIN
     Route: 065
  13. SENOKOT [Suspect]
     Indication: ABDOMINAL PAIN
     Route: 065

REACTIONS (4)
  - ELECTROCARDIOGRAM CHANGE [None]
  - ELECTROCARDIOGRAM QT CORRECTED INTERVAL PROLONGED [None]
  - METABOLIC ACIDOSIS [None]
  - SEROTONIN SYNDROME [None]
